FAERS Safety Report 14520551 (Version 3)
Quarter: 2019Q1

REPORT INFORMATION
  Report Type: Spontaneous
  Country: US (occurrence: US)
  Receive Date: 20180212
  Receipt Date: 20190205
  Transmission Date: 20190417
  Serious: No
  Sender: FDA-Public Use
  Company Number: US-MYLANLABS-2018M1008282

PATIENT
  Sex: Female
  Weight: 45.8 kg

DRUGS (1)
  1. LEVETIRACETAM. [Suspect]
     Active Substance: LEVETIRACETAM
     Indication: GENERALISED TONIC-CLONIC SEIZURE
     Dosage: UNK, TID

REACTIONS (3)
  - Paraesthesia [Unknown]
  - Blood pressure increased [Unknown]
  - Drug hypersensitivity [Unknown]
